FAERS Safety Report 4305723-0 (Version None)
Quarter: 2004Q1

REPORT INFORMATION
  Report Type: 
  Country: None (occurrence: None)
  Receive Date: 20040225
  Receipt Date: 20021217
  Transmission Date: 20041129
  Serious: Yes (Other)
  Sender: FDA-Public Use
  Company Number: 163-20785-02110191

PATIENT
  Age: 69 Year
  Sex: Female

DRUGS (4)
  1. THALOMID [Suspect]
     Indication: MULTIPLE MYELOMA
     Dosage: 100 MG, QD, ORAL
     Route: 048
     Dates: start: 20010713, end: 20021102
  2. ZOMETA [Concomitant]
  3. DECADRON [Concomitant]
  4. COUMADIN [Concomitant]

REACTIONS (6)
  - ANGIOPLASTY [None]
  - CARDIAC DISORDER [None]
  - CARDIAC PACEMAKER INSERTION [None]
  - DISEASE RECURRENCE [None]
  - NEUROPATHY [None]
  - PULMONARY EMBOLISM [None]
